FAERS Safety Report 7096729-X (Version None)
Quarter: 2010Q4

REPORT INFORMATION
  Report Type: 
  Country: None (occurrence: None)
  Receive Date: 20101111
  Receipt Date: 20091116
  Transmission Date: 20110411
  Serious: No
  Sender: FDA-Public Use
  Company Number: US-KINGPHARMUSA00001-K200901438

PATIENT
  Age: 61 Year
  Sex: Female
  Weight: 131.52 kg

DRUGS (4)
  1. ALTACE [Suspect]
     Indication: HYPERTENSION
     Dosage: 10 MG, QD
     Route: 048
     Dates: start: 20080101
  2. FUROSEMIDE [Concomitant]
     Indication: FLUID RETENTION
  3. ZOLOFT [Concomitant]
     Indication: ANXIETY
  4. NAPROXEN [Concomitant]
     Indication: ARTHRITIS

REACTIONS (1)
  - DRUG INEFFECTIVE [None]
